FAERS Safety Report 6976829-2 (Version None)
Quarter: 2010Q3

REPORT INFORMATION
  Report Type: 
  Country: None (occurrence: None)
  Receive Date: 20100910
  Receipt Date: 20100901
  Transmission Date: 20110219
  Serious: Yes (Hospitalization)
  Sender: FDA-Public Use
  Company Number: A0870851A

PATIENT
  Age: 66 Year
  Sex: Male
  Weight: 106.4 kg

DRUGS (8)
  1. AVANDIA [Suspect]
     Indication: TYPE 2 DIABETES MELLITUS
     Dosage: 8MG PER DAY
     Route: 048
  2. INSULIN [Concomitant]
  3. ATENOLOL [Concomitant]
  4. TRIAZOLAM [Concomitant]
  5. DICYCLOMINE [Concomitant]
  6. PREVACID [Concomitant]
  7. STEROID [Concomitant]
  8. ALLEGRA [Concomitant]

REACTIONS (9)
  - CAROTID ARTERIOSCLEROSIS [None]
  - CEREBELLAR ATAXIA [None]
  - DIASTOLIC DYSFUNCTION [None]
  - DIZZINESS [None]
  - DRUG ABUSE [None]
  - ISCHAEMIC STROKE [None]
  - PARKINSONISM [None]
  - PLEURAL EFFUSION [None]
  - PRESYNCOPE [None]
